FAERS Safety Report 12416237 (Version 1)
Quarter: 2016Q2

REPORT INFORMATION
  Report Type: Spontaneous
  Country: US (occurrence: US)
  Receive Date: 20160530
  Receipt Date: 20160530
  Transmission Date: 20160815
  Serious: No
  Sender: FDA-Public Use
  Company Number: US-JNJFOC-20160500849

PATIENT
  Sex: Female
  Weight: 48.08 kg

DRUGS (4)
  1. ASPIRIN. [Concomitant]
     Active Substance: ASPIRIN
     Indication: CARDIAC DISORDER
     Route: 048
  2. VITAMIN D [Concomitant]
     Active Substance: CHOLECALCIFEROL
     Indication: VITAMIN SUPPLEMENTATION
     Dosage: PER DAY
     Route: 048
  3. TRAMADOL HYDROCHLORIDE. [Suspect]
     Active Substance: TRAMADOL HYDROCHLORIDE
     Indication: SCOLIOSIS
     Dosage: TWICE DAILY
     Route: 048
     Dates: start: 2013
  4. PRESERVISION [Suspect]
     Active Substance: MINERALS\VITAMINS
     Indication: MACULAR DEGENERATION
     Dosage: TWICE DAILY
     Route: 048
     Dates: start: 2013

REACTIONS (6)
  - Feeling jittery [Unknown]
  - Dizziness [Unknown]
  - Nausea [Unknown]
  - Visual impairment [Unknown]
  - Feeling abnormal [Unknown]
  - Dyskinesia [Unknown]
